FAERS Safety Report 8945924 (Version 3)
Quarter: 2013Q1

REPORT INFORMATION
  Report Type: Spontaneous
  Country: JP (occurrence: JP)
  Receive Date: 20121205
  Receipt Date: 20130205
  Transmission Date: 20140127
  Serious: Yes (Other)
  Sender: FDA-Public Use
  Company Number: JP-B.I. PHARMACEUTICALS,INC./RIDGEFIELD-2012-BI-01992NB

PATIENT
  Sex: Male

DRUGS (1)
  1. PRAZAXA [Suspect]
     Route: 065

REACTIONS (1)
  - Gastric cancer [Unknown]
